FAERS Safety Report 7287546-6 (Version None)
Quarter: 2011Q1

REPORT INFORMATION
  Report Type: 
  Country: None (occurrence: None)
  Receive Date: 20110208
  Receipt Date: 20110208
  Transmission Date: 20110831
  Serious: Yes (Other)
  Sender: FDA-Public Use
  Company Number: None

PATIENT
  Age: 35 Year
  Sex: Male
  Weight: 75 kg

DRUGS (1)
  1. PROZAC [Suspect]

REACTIONS (5)
  - TONGUE DISORDER [None]
  - MUSCLE TWITCHING [None]
  - CHILLS [None]
  - TIC [None]
  - DYSKINESIA [None]
